FAERS Safety Report 25716839 (Version 3)
Quarter: 2025Q3

REPORT INFORMATION
  Report Type: Report from Study
  Country: JP (occurrence: JP)
  Receive Date: 20250822
  Receipt Date: 20250905
  Transmission Date: 20251021
  Serious: Yes (Hospitalization)
  Sender: ABBVIE
  Company Number: JP-ABBVIE-6106356

PATIENT
  Age: 64 Year
  Sex: Female

DRUGS (1)
  1. VYALEV [Suspect]
     Active Substance: FOSCARBIDOPA\FOSLEVODOPA
     Indication: Parkinson^s disease
     Route: 058
     Dates: start: 2023

REACTIONS (33)
  - Psychiatric symptom [Unknown]
  - Parkinson^s disease [Unknown]
  - Gait disturbance [Recovered/Resolved]
  - Hypoaesthesia [Unknown]
  - Malaise [Recovered/Resolved]
  - Malaise [Recovered/Resolved]
  - Malaise [Recovered/Resolved]
  - Malaise [Recovered/Resolved]
  - Infusion site erythema [Unknown]
  - Infusion site reaction [Unknown]
  - Infusion site irritation [Unknown]
  - Malaise [Recovered/Resolved]
  - Infusion site reaction [Recovered/Resolved]
  - Infusion site swelling [Unknown]
  - Malaise [Recovered/Resolved]
  - Infusion site pain [Unknown]
  - Infusion site discharge [Recovered/Resolved]
  - Infusion site haemorrhage [Unknown]
  - Infusion site discharge [Recovered/Resolved]
  - Malaise [Recovered/Resolved]
  - Infusion site discharge [Unknown]
  - Product use issue [Unknown]
  - Pain in extremity [Unknown]
  - Limb discomfort [Unknown]
  - Infusion site bruising [Unknown]
  - Infusion site mass [Not Recovered/Not Resolved]
  - Dyskinesia [Unknown]
  - Somnolence [Unknown]
  - Fatigue [Unknown]
  - Pain in extremity [Not Recovered/Not Resolved]
  - Malaise [Unknown]
  - Malaise [Recovered/Resolved]
  - Hyperhidrosis [Unknown]

NARRATIVE: CASE EVENT DATE: 20231210
